FAERS Safety Report 25552730 (Version 1)
Quarter: 2025Q3

REPORT INFORMATION
  Report Type: Spontaneous
  Country: US (occurrence: US)
  Receive Date: 20250715
  Receipt Date: 20250715
  Transmission Date: 20251021
  Serious: No
  Sender: ELI LILLY AND COMPANY
  Company Number: US-ELI_LILLY_AND_COMPANY-US202507011412

PATIENT
  Age: 39 Year
  Sex: Female

DRUGS (12)
  1. ZEPBOUND [Suspect]
     Active Substance: TIRZEPATIDE
     Indication: Weight control
     Route: 065
  2. ZEPBOUND [Suspect]
     Active Substance: TIRZEPATIDE
     Indication: Weight control
     Route: 065
  3. ZEPBOUND [Suspect]
     Active Substance: TIRZEPATIDE
     Indication: Weight control
     Route: 065
  4. ZEPBOUND [Suspect]
     Active Substance: TIRZEPATIDE
     Indication: Weight control
     Route: 065
  5. ZEPBOUND [Suspect]
     Active Substance: TIRZEPATIDE
     Indication: Anxiety
  6. ZEPBOUND [Suspect]
     Active Substance: TIRZEPATIDE
     Indication: Anxiety
  7. ZEPBOUND [Suspect]
     Active Substance: TIRZEPATIDE
     Indication: Anxiety
  8. ZEPBOUND [Suspect]
     Active Substance: TIRZEPATIDE
     Indication: Anxiety
  9. ZEPBOUND [Suspect]
     Active Substance: TIRZEPATIDE
     Indication: Mental disorder
  10. ZEPBOUND [Suspect]
     Active Substance: TIRZEPATIDE
     Indication: Mental disorder
  11. ZEPBOUND [Suspect]
     Active Substance: TIRZEPATIDE
     Indication: Mental disorder
  12. ZEPBOUND [Suspect]
     Active Substance: TIRZEPATIDE
     Indication: Mental disorder

REACTIONS (1)
  - Extra dose administered [Unknown]
